FAERS Safety Report 8998983 (Version 1)
Quarter: 2013Q1

REPORT INFORMATION
  Report Type: Spontaneous
  Country: US (occurrence: US)
  Receive Date: 20130103
  Receipt Date: 20130103
  Transmission Date: 20140127
  Serious: No
  Sender: FDA-Public Use
  Company Number: US-PFIZER INC-2012329868

PATIENT
  Sex: Male

DRUGS (2)
  1. PROTONIX [Suspect]
     Dosage: UNK
  2. INSPRA [Suspect]
     Dosage: UNK

REACTIONS (3)
  - Cardiac disorder [Unknown]
  - Nausea [Unknown]
  - Blood cholesterol increased [Unknown]
